FAERS Safety Report 8384084-4 (Version None)
Quarter: 2012Q2

REPORT INFORMATION
  Report Type: 
  Country: None (occurrence: None)
  Receive Date: 20120524
  Receipt Date: 20120515
  Transmission Date: 20120825
  Serious: Yes (Other)
  Sender: FDA-Public Use
  Company Number: AU-ROCHE-1069404

PATIENT
  Sex: Female

DRUGS (7)
  1. NUROFEN PLUS [Concomitant]
     Route: 065
  2. PLAQUENIL [Concomitant]
     Route: 065
  3. ZOLOFT [Concomitant]
     Route: 065
  4. OXYCODONE HCL [Concomitant]
     Route: 065
  5. CRESTOR [Concomitant]
     Route: 065
  6. ACTEMRA [Suspect]
     Indication: RHEUMATOID ARTHRITIS
     Route: 065
     Dates: start: 20120417
  7. NORFLEX [Concomitant]
     Route: 065

REACTIONS (2)
  - BACK PAIN [None]
  - PAIN IN EXTREMITY [None]
